FAERS Safety Report 18116547 (Version 1)
Quarter: 2020Q3

REPORT INFORMATION
  Report Type: Spontaneous
  Country: CA (occurrence: CA)
  Receive Date: 20200805
  Receipt Date: 20200805
  Transmission Date: 20201103
  Serious: Yes (Life-Threatening, Hospitalization)
  Sender: FDA-Public Use
  Company Number: CA-TEVA-2020-CA-1809176

PATIENT
  Age: 2 Year
  Sex: Female
  Weight: 15 kg

DRUGS (2)
  1. VINCRISTINE SULFATE INJECTION USP [Concomitant]
     Active Substance: VINCRISTINE SULFATE
  2. METHOTREXATE INJECTION, USP WITH PRESERVATIVE(MULTIDOSE VIALS) [Suspect]
     Active Substance: METHOTREXATE
     Route: 037

REACTIONS (3)
  - Parainfluenzae virus infection [Unknown]
  - Neutropenia [Unknown]
  - Pyrexia [Unknown]
